FAERS Safety Report 10556893 (Version 2)
Quarter: 2014Q4

REPORT INFORMATION
  Report Type: Report from Study
  Country: GB (occurrence: GB)
  Receive Date: 20141031
  Receipt Date: 20141118
  Transmission Date: 20150529
  Serious: Yes (Death)
  Sender: FDA-Public Use
  Company Number: GB-JNJFOC-20141014150

PATIENT
  Age: 40 Year
  Sex: Male

DRUGS (6)
  1. SIMVASTATIN. [Suspect]
     Active Substance: SIMVASTATIN
     Indication: HYPERCHOLESTEROLAEMIA
     Route: 048
  2. TRAMADOL HYDROCHLORIDE. [Suspect]
     Active Substance: TRAMADOL HYDROCHLORIDE
     Indication: NEURALGIA
     Route: 048
  3. PROCYCLIDINE [Suspect]
     Active Substance: PROCYCLIDINE
     Indication: NEURALGIA
     Route: 065
  4. PALIPERIDONE PALMITATE [Suspect]
     Active Substance: PALIPERIDONE PALMITATE
     Indication: SCHIZOPHRENIA
     Route: 030
     Dates: start: 20140912
  5. GABAPENTIN. [Suspect]
     Active Substance: GABAPENTIN
     Indication: NEURALGIA
     Route: 048
  6. OMEPRAZOLE. [Suspect]
     Active Substance: OMEPRAZOLE
     Indication: SCHIZOPHRENIA
     Route: 065

REACTIONS (4)
  - Deep vein thrombosis [Fatal]
  - Sedation [Recovering/Resolving]
  - Feeling abnormal [Recovering/Resolving]
  - Pulmonary embolism [Fatal]

NARRATIVE: CASE EVENT DATE: 20140926
